FAERS Safety Report 7530385-9 (Version None)
Quarter: 2011Q2

REPORT INFORMATION
  Report Type: 
  Country: None (occurrence: None)
  Receive Date: 20110607
  Receipt Date: 20101215
  Transmission Date: 20111010
  Serious: No
  Sender: FDA-Public Use
  Company Number: US-TYCO HEALTHCARE/MALLINCKRODT-T201002385

PATIENT
  Sex: Female
  Weight: 73.016 kg

DRUGS (9)
  1. OCTREOSCAN [Suspect]
     Indication: SOMATOSTATIN RECEPTOR SCAN
     Dosage: UNK, SINGLE
     Route: 042
     Dates: start: 20101201, end: 20101201
  2. NEURONTIN [Concomitant]
     Dosage: 60 MG TID
  3. HUMALOG [Concomitant]
     Dosage: WITH MEALS
  4. CRESTOR [Concomitant]
     Dosage: 40 MG, QD
  5. XIFAXAN [Concomitant]
     Dosage: 600 MG, TID
  6. CELEXA [Concomitant]
     Dosage: 30 MG, QD
  7. LASIX [Concomitant]
     Dosage: 20 UNK, QOD
  8. PRILOSEC [Concomitant]
     Dosage: 40 MG, QD
  9. FERROUS SULFATE TAB [Concomitant]
     Dosage: 1 QD

REACTIONS (2)
  - BLISTER [None]
  - RASH [None]
